FAERS Safety Report 9838584 (Version 4)
Quarter: 2014Q2

REPORT INFORMATION
  Report Type: Spontaneous
  Country: US (occurrence: US)
  Receive Date: 20140123
  Receipt Date: 20140512
  Transmission Date: 20141212
  Serious: Yes (Other)
  Sender: FDA-Public Use
  Company Number: US-PFIZER INC-2014020136

PATIENT
  Age: 68 Year
  Sex: Female

DRUGS (7)
  1. PROTONIX [Suspect]
     Indication: GASTROOESOPHAGEAL REFLUX DISEASE
     Dosage: 40 MG, 2X/DAY
  2. SPIRIVA [Concomitant]
     Dosage: UNK, 1 PUFF Q 24 HOUR
  3. ALPRAZOLAM [Concomitant]
     Dosage: UNK
  4. TARCEVA [Concomitant]
     Dosage: 150 MG, 1X/DAY
  5. VITAMIN B [Concomitant]
     Dosage: UNK
  6. VITAMIN C [Concomitant]
     Dosage: UNK
  7. VITAMIN D [Concomitant]
     Dosage: UNK

REACTIONS (3)
  - Lung neoplasm malignant [Unknown]
  - Dyspnoea [Unknown]
  - Panic attack [Unknown]
